FAERS Safety Report 20698005 (Version 2)
Quarter: 2022Q2

REPORT INFORMATION
  Report Type: Spontaneous
  Country: US (occurrence: US)
  Receive Date: 20220412
  Receipt Date: 20220419
  Transmission Date: 20220721
  Serious: Yes (Other)
  Sender: FDA-Public Use
  Company Number: US-BEH-2022144087

PATIENT
  Age: 24 Year
  Sex: Female

DRUGS (2)
  1. HIZENTRA [Suspect]
     Active Substance: HUMAN IMMUNOGLOBULIN G
     Indication: Primary immunodeficiency syndrome
     Dosage: 10 GRAM, QW
     Route: 065
     Dates: start: 202105
  2. HIZENTRA [Suspect]
     Active Substance: HUMAN IMMUNOGLOBULIN G
     Indication: Immunodeficiency common variable

REACTIONS (10)
  - Antinuclear antibody positive [Not Recovered/Not Resolved]
  - Joint injury [Unknown]
  - Arthritis [Unknown]
  - Back pain [Unknown]
  - Alopecia [Unknown]
  - Fatigue [Unknown]
  - Arthralgia [Unknown]
  - Arthralgia [Unknown]
  - Orthostatic hypotension [Unknown]
  - Lupus-like syndrome [Not Recovered/Not Resolved]

NARRATIVE: CASE EVENT DATE: 20220101
